FAERS Safety Report 25285311 (Version 1)
Quarter: 2025Q2

REPORT INFORMATION
  Report Type: Spontaneous
  Country: US (occurrence: US)
  Receive Date: 20250509
  Receipt Date: 20250509
  Transmission Date: 20250717
  Serious: No
  Sender: COLLEGIUM PHARMACEUTICAL
  Company Number: US-COLLEGIUM PHARMACEUTICAL, INC.-20241000915

PATIENT

DRUGS (7)
  1. XTAMPZA ER [Suspect]
     Active Substance: OXYCODONE
     Indication: Spinal disorder
     Route: 048
  2. XTAMPZA ER [Suspect]
     Active Substance: OXYCODONE
     Indication: Spinal fracture
  3. XTAMPZA ER [Suspect]
     Active Substance: OXYCODONE
     Indication: Exostosis
  4. OXYCODONE [Concomitant]
     Active Substance: OXYCODONE
     Indication: Product used for unknown indication
     Route: 065
  5. GABAPENTIN [Concomitant]
     Active Substance: GABAPENTIN
     Indication: Product used for unknown indication
     Route: 065
  6. CYCLOBENZAPRINE [Concomitant]
     Active Substance: CYCLOBENZAPRINE
     Indication: Product used for unknown indication
     Route: 065
  7. DULOXETINE [Concomitant]
     Active Substance: DULOXETINE
     Indication: Product used for unknown indication
     Route: 065

REACTIONS (2)
  - Pain [Unknown]
  - Product dose omission issue [Unknown]
